FAERS Safety Report 23808238 (Version 1)
Quarter: 2024Q2

REPORT INFORMATION
  Report Type: Spontaneous
  Country: CA (occurrence: CA)
  Receive Date: 20240502
  Receipt Date: 20240502
  Transmission Date: 20240715
  Serious: Yes (Other)
  Sender: FDA-Public Use
  Company Number: CA-CELLTRION INC.-2024CA010058

PATIENT

DRUGS (5)
  1. INFLIXIMAB [Suspect]
     Active Substance: INFLIXIMAB
     Indication: Crohn^s disease
     Dosage: 590 MG
     Route: 065
  2. INFLIXIMAB [Suspect]
     Active Substance: INFLIXIMAB
     Dosage: 5 MG/KG
     Route: 065
  3. MESALAMINE [Suspect]
     Active Substance: MESALAMINE
     Dosage: 2 G
     Route: 065
  4. MESALAMINE [Suspect]
     Active Substance: MESALAMINE
     Dosage: 2.4 MG 1 EVERY 0.5 DAYS
     Route: 065
  5. PENTASA [Suspect]
     Active Substance: MESALAMINE
     Dosage: 2 G 1 EVERY 0.5 DAYS
     Route: 065

REACTIONS (8)
  - Drug ineffective [Recovered/Resolved]
  - Abortion spontaneous [Recovered/Resolved]
  - Hidradenitis [Recovered/Resolved]
  - Impaired healing [Recovered/Resolved]
  - Nasopharyngitis [Recovered/Resolved]
  - Abscess drainage [Recovered/Resolved]
  - Anal abscess [Recovered/Resolved]
  - Disease recurrence [Recovered/Resolved]
